FAERS Safety Report 5845499-9 (Version None)
Quarter: 2008Q3

REPORT INFORMATION
  Report Type: 
  Country: None (occurrence: None)
  Receive Date: 20080814
  Receipt Date: 20080731
  Transmission Date: 20090109
  Serious: Yes (Hospitalization)
  Sender: FDA-Public Use
  Company Number: JP-ROCHE-576634

PATIENT
  Sex: Female

DRUGS (13)
  1. LUPRAC [Suspect]
     Indication: CARDIAC FAILURE
     Route: 048
     Dates: start: 20080501, end: 20080709
  2. DEPAS [Suspect]
     Indication: INSOMNIA
     Route: 048
     Dates: start: 20040401, end: 20080708
  3. MICARDIS [Suspect]
     Indication: HYPERTENSION
     Route: 048
     Dates: start: 20061201, end: 20080709
  4. SIGMART [Concomitant]
     Route: 048
     Dates: start: 20051201
  5. OPALMON [Concomitant]
     Route: 048
     Dates: start: 20040401
  6. CEROCRAL [Concomitant]
     Route: 048
     Dates: start: 20040401
  7. ROCALTROL [Concomitant]
     Route: 048
     Dates: start: 20040401
  8. ITOROL [Concomitant]
     Route: 048
     Dates: start: 20040701
  9. MAALOX [Concomitant]
     Route: 048
     Dates: start: 20040901
  10. HERBESSER R [Concomitant]
     Dosage: DRUG NAME HERBESSER R CAPSULES 100 MG
     Route: 048
     Dates: start: 20051001
  11. LASIX [Concomitant]
     Route: 048
     Dates: start: 20080301
  12. HANP [Concomitant]
     Route: 042
     Dates: start: 20080706, end: 20080708
  13. 1 CONCOMITANT DRUG [Concomitant]
     Dosage: DRUG: REPLACEMENT FLUID
     Route: 051

REACTIONS (1)
  - RHABDOMYOLYSIS [None]
